FAERS Safety Report 18973342 (Version 3)
Quarter: 2021Q1

REPORT INFORMATION
  Report Type: Report from Study
  Country: MX (occurrence: MX)
  Receive Date: 20210305
  Receipt Date: 20210318
  Transmission Date: 20210420
  Serious: Yes (Death, Life-Threatening, Hospitalization)
  Sender: FDA-Public Use
  Company Number: MX-ROCHE-2779856

PATIENT
  Age: 44 Year
  Sex: Female
  Weight: 61 kg

DRUGS (22)
  1. ATEZOLIZUMAB. [Suspect]
     Active Substance: ATEZOLIZUMAB
     Indication: CERVIX CARCINOMA
     Dosage: THE START DATE OF MOST RECENT DOSE OF ATEZOLIZUMAB (1200 MG) PRIOR TO SAE (SERIOUS ADVERSE EVENT) AN
     Route: 041
     Dates: start: 20210209
  2. ISOSORBIDE DINITRATE. [Concomitant]
     Active Substance: ISOSORBIDE DINITRATE
     Indication: HYPERTENSION
     Route: 060
     Dates: start: 20210302
  3. PRAZOSIN. [Concomitant]
     Active Substance: PRAZOSIN
     Indication: HYPERTENSION
     Route: 048
     Dates: start: 20210302
  4. INSULIN RAPID [Concomitant]
     Active Substance: INSULIN NOS
     Route: 042
     Dates: start: 20210309, end: 20210309
  5. DEXTROSE. [Concomitant]
     Active Substance: DEXTROSE
     Indication: BLOOD POTASSIUM INCREASED
     Route: 042
     Dates: start: 20210303, end: 20210303
  6. OXYGEN SUPPLEMENT (HIGH FLOW NASAL CANNULA) [Concomitant]
     Indication: HYPOXIA
     Route: 045
     Dates: start: 20210301
  7. ACYCLOVIR. [Concomitant]
     Active Substance: ACYCLOVIR
     Indication: MUCOSAL INFLAMMATION
     Route: 061
     Dates: start: 20210309, end: 20210311
  8. VITAMIN E [Concomitant]
     Active Substance: .ALPHA.-TOCOPHEROL
     Indication: MUCOSAL INFLAMMATION
     Route: 061
     Dates: start: 20210310, end: 20210311
  9. METFORMIN [Concomitant]
     Active Substance: METFORMIN HYDROCHLORIDE
     Indication: TYPE 2 DIABETES MELLITUS
     Dates: start: 201701
  10. HYDROCHLOROTHIAZIDE. [Concomitant]
     Active Substance: HYDROCHLOROTHIAZIDE
     Indication: HYPERTENSION
     Route: 048
     Dates: start: 20210302
  11. CALCIUM GLUCONATE. [Concomitant]
     Active Substance: CALCIUM GLUCONATE
     Indication: BLOOD CALCIUM DECREASED
     Dosage: 1 AMPULE
     Route: 042
     Dates: start: 20210305, end: 20210305
  12. INSULIN RAPID [Concomitant]
     Active Substance: INSULIN NOS
     Indication: BLOOD GLUCOSE INCREASED
     Route: 058
     Dates: start: 20210227
  13. RED BLOOD CELLS [Concomitant]
     Active Substance: HUMAN RED BLOOD CELL
     Route: 042
     Dates: start: 20210307, end: 20210307
  14. AMLODIPINE [Concomitant]
     Active Substance: AMLODIPINE BESYLATE
     Indication: HYPERTENSION
     Route: 048
     Dates: start: 20210301
  15. DEXTROSE. [Concomitant]
     Active Substance: DEXTROSE
     Route: 042
     Dates: start: 20210309, end: 20210309
  16. MICONAZOLE. [Concomitant]
     Active Substance: MICONAZOLE
     Indication: MUCOSAL INFLAMMATION
     Route: 061
     Dates: start: 20210309, end: 20210311
  17. MTIG 7192A [Suspect]
     Active Substance: TIRAGOLUMAB
     Indication: CERVIX CARCINOMA
     Dosage: THE START DATE OF MOST RECENT DOSE OF MTIG 7192A (600 MG) PRIOR TO SAE (SERIOUS ADVERSE EVENT) AND A
     Route: 042
     Dates: start: 20210209
  18. INSULIN RAPID [Concomitant]
     Active Substance: INSULIN NOS
     Indication: BLOOD POTASSIUM INCREASED
     Route: 042
     Dates: start: 20210303, end: 20210303
  19. SODIUM BICARBONATE. [Concomitant]
     Active Substance: SODIUM BICARBONATE
     Indication: METABOLIC ACIDOSIS
     Route: 042
     Dates: start: 20210303
  20. RED BLOOD CELLS [Concomitant]
     Active Substance: HUMAN RED BLOOD CELL
     Indication: ANAEMIA
     Route: 042
     Dates: start: 20210301, end: 20210301
  21. ALPRAZOLAM. [Concomitant]
     Active Substance: ALPRAZOLAM
     Indication: ANXIETY
     Route: 048
     Dates: start: 20210306, end: 20210311
  22. DEXMEDETOMIDINE. [Concomitant]
     Active Substance: DEXMEDETOMIDINE
     Indication: ANXIETY
     Route: 042
     Dates: start: 20210308, end: 20210311

REACTIONS (2)
  - Autoimmune hepatitis [Not Recovered/Not Resolved]
  - Tumour lysis syndrome [Not Recovered/Not Resolved]

NARRATIVE: CASE EVENT DATE: 20210227
